FAERS Safety Report 12732779 (Version 1)
Quarter: 2016Q3

REPORT INFORMATION
  Report Type: Spontaneous
  Country: US (occurrence: US)
  Receive Date: 20160910
  Receipt Date: 20160910
  Transmission Date: 20161109
  Serious: No
  Sender: FDA-Public Use
  Company Number: None

PATIENT
  Sex: Male
  Weight: 72 kg

DRUGS (5)
  1. AMPHETAMINE SALTS [Concomitant]
     Active Substance: AMPHETAMINE ASPARTATE\AMPHETAMINE SULFATE\DEXTROAMPHETAMINE SACCHARATE\DEXTROAMPHETAMINE SULFATE
  2. AMPHETAMINE [Suspect]
     Active Substance: AMPHETAMINE
     Indication: ATTENTION DEFICIT/HYPERACTIVITY DISORDER
     Dosage: 45 TABLET 3 TIMES A DAY ORAL
     Route: 048
  3. CLONIDINE. [Concomitant]
     Active Substance: CLONIDINE
  4. SERTRALINE [Concomitant]
     Active Substance: SERTRALINE HYDROCHLORIDE
  5. MEN^S DAILY VITAMIN [Concomitant]

REACTIONS (5)
  - Abdominal discomfort [None]
  - Headache [None]
  - Product substitution issue [None]
  - Lethargy [None]
  - Disturbance in attention [None]
